FAERS Safety Report 5624184-2 (Version None)
Quarter: 2008Q1

REPORT INFORMATION
  Report Type: 
  Country: None (occurrence: None)
  Receive Date: 20080213
  Receipt Date: 20080208
  Transmission Date: 20080703
  Serious: Yes (Hospitalization)
  Sender: FDA-Public Use
  Company Number: PHRM2008FR00794

PATIENT
  Age: 89 Year
  Sex: Male

DRUGS (7)
  1. KARDEGIC [Suspect]
     Dosage: 75 MG, QD
     Route: 048
     Dates: end: 20071213
  2. VOLTAREN [Concomitant]
     Indication: PAIN
     Route: 061
     Dates: start: 20071205
  3. HYTACAND [Interacting]
     Dosage: 4 MG, QD
  4. PLAVIX [Interacting]
     Dosage: 75 MG, QD
  5. CERVOXAN [Concomitant]
     Dosage: 60 MG, QD
  6. SPECIAFOLDINE [Concomitant]
     Dosage: 1 DF, QD
  7. VOLTAREN [Suspect]
     Indication: PAIN
     Dosage: 1 DF, QD
     Route: 054
     Dates: start: 20071205, end: 20071210

REACTIONS (10)
  - ANAEMIA [None]
  - DYSKINESIA [None]
  - GASTRODUODENAL ULCER [None]
  - GENERAL PHYSICAL HEALTH DETERIORATION [None]
  - HEART RATE INCREASED [None]
  - LOSS OF CONSCIOUSNESS [None]
  - MALAISE [None]
  - MELAENA [None]
  - PALLOR [None]
  - RENAL FAILURE [None]
